FAERS Safety Report 13594592 (Version 1)
Quarter: 2017Q2

REPORT INFORMATION
  Report Type: Spontaneous
  Country: US (occurrence: US)
  Receive Date: 20170530
  Receipt Date: 20170530
  Transmission Date: 20170830
  Serious: Yes (Death, Other)
  Sender: FDA-Public Use
  Company Number: US-BAUSCH-BL-2017-017659

PATIENT
  Age: 31 Year
  Sex: Female

DRUGS (2)
  1. FAT EMULSION NOS [Suspect]
     Active Substance: EGG PHOSPHOLIPIDS\SAFFLOWER OIL\SOYBEAN OIL
     Indication: ELECTROCARDIOGRAM QRS COMPLEX PROLONGED
     Route: 042
  2. BUPROPION HYDROCHLORIDE XL [Suspect]
     Active Substance: BUPROPION HYDROCHLORIDE
     Indication: PRODUCT USED FOR UNKNOWN INDICATION
     Dosage: APPROXIMATELY 13 G
     Route: 048

REACTIONS (9)
  - Electrocardiogram QRS complex prolonged [Unknown]
  - Overdose [Fatal]
  - Therapy non-responder [Unknown]
  - Ventricular tachycardia [Unknown]
  - Generalised tonic-clonic seizure [Unknown]
  - Aphasia [Unknown]
  - Status epilepticus [Unknown]
  - Laboratory test interference [Unknown]
  - Circulatory collapse [Fatal]
